FAERS Safety Report 9519312 (Version 1)
Quarter: 2013Q3

REPORT INFORMATION
  Report Type: Spontaneous
  Country: JP (occurrence: JP)
  Receive Date: 20130912
  Receipt Date: 20130912
  Transmission Date: 20140515
  Serious: Yes (Other)
  Sender: FDA-Public Use
  Company Number: JP-TEVA-430973ISR

PATIENT
  Age: 75 Year
  Sex: Female
  Weight: 52 kg

DRUGS (4)
  1. FUROSEMIDE [Suspect]
     Dosage: 20-40 MG/DAY
     Route: 065
  2. DIGOXIN [Suspect]
     Dosage: 0.125 MG/DAY
     Route: 065
  3. CAPTOPRIL [Suspect]
     Dosage: 40 MG/DAY
     Route: 065
  4. ASPIRIN [Concomitant]
     Dosage: 100 MG/DAY
     Route: 065

REACTIONS (3)
  - Ventricular tachycardia [Unknown]
  - Hypotension [Unknown]
  - Ventricular extrasystoles [Unknown]
